FAERS Safety Report 4884192-6 (Version None)
Quarter: 2005Q4

REPORT INFORMATION
  Report Type: 
  Country: None (occurrence: None)
  Receive Date: 20051201
  Receipt Date: 20050908
  Transmission Date: 20060501
  Serious: No
  Sender: FDA-Public Use
  Company Number: 2005PV001936

PATIENT
  Age: 66 Year
  Sex: Female
  Weight: 148.5 kg

DRUGS (9)
  1. BYETTA [Suspect]
     Indication: DIABETES MELLITUS NON-INSULIN-DEPENDENT
     Dosage: 5 MCG; BID; SC
     Route: 058
     Dates: start: 20050829
  2. ATENOLOL [Concomitant]
  3. THYROID TAB [Concomitant]
  4. GLUCOTROL [Concomitant]
  5. FOLIC ACID [Concomitant]
  6. NIACIN [Concomitant]
  7. DRIXORAL [Concomitant]
  8. AMOXICILLIN [Concomitant]
  9. SENNOSIDE [Concomitant]

REACTIONS (8)
  - BLOOD GLUCOSE DECREASED [None]
  - CONSTIPATION [None]
  - DIZZINESS [None]
  - ERUCTATION [None]
  - FEELING JITTERY [None]
  - FLATULENCE [None]
  - NAUSEA [None]
  - WEIGHT DECREASED [None]
